FAERS Safety Report 14476708 (Version 2)
Quarter: 2019Q1

REPORT INFORMATION
  Report Type: Report from Study
  Country: US (occurrence: US)
  Receive Date: 20180201
  Receipt Date: 20190104
  Transmission Date: 20190417
  Serious: Yes (Hospitalization, Other)
  Sender: FDA-Public Use
  Company Number: US-BRISTOL-MYERS SQUIBB COMPANY-BMS-2018-006558

PATIENT
  Sex: Female
  Weight: 82 kg

DRUGS (3)
  1. APIXABAN [Suspect]
     Active Substance: APIXABAN
     Indication: PRODUCT USED FOR UNKNOWN INDICATION
     Dosage: 2.5 MG, BID
     Route: 048
     Dates: start: 2016
  2. APIXABAN [Suspect]
     Active Substance: APIXABAN
     Indication: CEREBROVASCULAR ACCIDENT PROPHYLAXIS
     Dosage: 5 MG, BID
     Route: 048
     Dates: start: 2015
  3. OMEGA XL [Concomitant]
     Active Substance: DIETARY SUPPLEMENT
     Indication: ARTHRALGIA
     Route: 065

REACTIONS (9)
  - Pain [Unknown]
  - Syncope [Unknown]
  - Epistaxis [Recovered/Resolved]
  - Prescribed underdose [Unknown]
  - Atrial fibrillation [Unknown]
  - Rash pruritic [Unknown]
  - Circumstance or information capable of leading to medication error [Unknown]
  - Influenza [Unknown]
  - Eczema [Unknown]

NARRATIVE: CASE EVENT DATE: 2016
